FAERS Safety Report 21067436 (Version 7)
Quarter: 2022Q4

REPORT INFORMATION
  Report Type: Report from Study
  Country: US (occurrence: US)
  Receive Date: 20220712
  Receipt Date: 20221013
  Transmission Date: 20230112
  Serious: Yes (Death, Hospitalization, Other)
  Sender: FDA-Public Use
  Company Number: US-GILEAD-2022-0588982

PATIENT
  Age: 9 Month
  Sex: Female
  Weight: 10.9 kg

DRUGS (9)
  1. AMBRISENTAN [Suspect]
     Active Substance: AMBRISENTAN
     Indication: Pulmonary arterial hypertension
     Dosage: 5 MG, QD
     Route: 048
     Dates: start: 20211102
  2. UPTRAVI [Concomitant]
     Active Substance: SELEXIPAG
  3. SILDENAFIL [Concomitant]
     Active Substance: SILDENAFIL
  4. ALBUTEROL [Concomitant]
     Active Substance: ALBUTEROL
  5. BUDESONIDE [Concomitant]
     Active Substance: BUDESONIDE
  6. LORATADINE [Concomitant]
     Active Substance: LORATADINE
     Dosage: 2.5 MG
     Route: 048
  7. SELEXIPAG [Concomitant]
     Active Substance: SELEXIPAG
     Dosage: 200 ML
     Route: 048
  8. OMEPRAZOLE [Concomitant]
     Active Substance: OMEPRAZOLE
     Dosage: 10 MG
     Route: 048
  9. SILDENAFIL CITRATE [Concomitant]
     Active Substance: SILDENAFIL CITRATE

REACTIONS (10)
  - Death [Fatal]
  - Oxygen saturation decreased [Unknown]
  - Rhinovirus infection [Unknown]
  - COVID-19 pneumonia [Recovered/Resolved]
  - Therapeutic procedure [Unknown]
  - Rhinorrhoea [Recovered/Resolved]
  - Pneumonitis [Recovered/Resolved]
  - Dyspnoea [Unknown]
  - Gait disturbance [Unknown]
  - Off label use [Not Recovered/Not Resolved]

NARRATIVE: CASE EVENT DATE: 20211105
